FAERS Safety Report 18331928 (Version 6)
Quarter: 2020Q4

REPORT INFORMATION
  Report Type: Spontaneous
  Country: US (occurrence: US)
  Receive Date: 20201001
  Receipt Date: 20201104
  Transmission Date: 20210113
  Serious: No
  Sender: FDA-Public Use
  Company Number: US-AMGEN-USASP2020155909

PATIENT
  Age: 63 Year
  Sex: Male

DRUGS (6)
  1. NEULASTA [Suspect]
     Active Substance: PEGFILGRASTIM
     Dosage: (0.64 ML OF 6 MG/0.6 ML) Q2WK
     Route: 058
  2. FOLINIC ACID [Concomitant]
     Active Substance: LEUCOVORIN
     Dosage: UNK
  3. NEULASTA [Suspect]
     Active Substance: PEGFILGRASTIM
     Dosage: (0.64 ML OF 6 MG/0.6 ML) Q2WK
     Route: 058
  4. 5-FU [FLUOROURACIL] [Concomitant]
     Active Substance: FLUOROURACIL
     Dosage: UNK
  5. NEULASTA [Suspect]
     Active Substance: PEGFILGRASTIM
     Indication: NEUTROPENIA
     Dosage: (0.64 ML OF 6 MG/0.6 ML) Q2WK
     Route: 058
  6. OXALIPLATIN. [Concomitant]
     Active Substance: OXALIPLATIN
     Dosage: UNK

REACTIONS (1)
  - Device malfunction [Unknown]

NARRATIVE: CASE EVENT DATE: 20200917
